FAERS Safety Report 19734582 (Version 1)
Quarter: 2021Q3

REPORT INFORMATION
  Report Type: Other
  Country: US (occurrence: US)
  Receive Date: 20210824
  Receipt Date: 20210824
  Transmission Date: 20211014
  Serious: Yes (Other)
  Sender: FDA-Public Use
  Company Number: US-ROCHE-2890681

PATIENT
  Sex: Female
  Weight: 98.97 kg

DRUGS (2)
  1. OCREVUS [Suspect]
     Active Substance: OCRELIZUMAB
     Indication: RELAPSING-REMITTING MULTIPLE SCLEROSIS
     Dosage: DATE OF TREATMENT: 21/JUN/2021
     Route: 042
     Dates: start: 2018
  2. AMBIEN [Concomitant]
     Active Substance: ZOLPIDEM TARTRATE
     Dosage: ONGOING YES?TAKES AT NIGHT
     Route: 048

REACTIONS (4)
  - Hepatic enzyme increased [Unknown]
  - Fall [Unknown]
  - Cholelithiasis [Recovering/Resolving]
  - Multiple sclerosis [Recovered/Resolved]

NARRATIVE: CASE EVENT DATE: 2021
